FAERS Safety Report 24098633 (Version 1)
Quarter: 2024Q3

REPORT INFORMATION
  Report Type: Other
  Country: US (occurrence: US)
  Receive Date: 20240716
  Receipt Date: 20240716
  Transmission Date: 20241016
  Serious: Yes (Hospitalization, Other)
  Sender: HLS THERAPEUTICS
  Company Number: US-HLS-202400237

PATIENT
  Age: 42 Year
  Sex: Female

DRUGS (4)
  1. CLOZAPINE [Suspect]
     Active Substance: CLOZAPINE
     Indication: Psychotic symptom
     Dosage: REDUCED TO 300 MG
     Route: 065
  2. CLOZAPINE [Suspect]
     Active Substance: CLOZAPINE
     Indication: Psychotic symptom
     Dosage: TAPERED UP TO 500 MG
     Route: 065
  3. ARIPIPRAZOLE [Concomitant]
     Active Substance: ARIPIPRAZOLE
     Indication: Product used for unknown indication
     Dosage: MONTHLY LONG-ACTING ARIPIPRAZOLE INJECTIONS.
     Route: 048
  4. VALPROATE SODIUM [Concomitant]
     Active Substance: VALPROATE SODIUM
     Indication: Product used for unknown indication
     Route: 065

REACTIONS (8)
  - Hallucination, auditory [Recovering/Resolving]
  - Tibia fracture [Unknown]
  - Dizziness [Unknown]
  - Electric shock sensation [Unknown]
  - Fall [Unknown]
  - Fibula fracture [Unknown]
  - Balance disorder [Unknown]
  - Off label use [Unknown]
